FAERS Safety Report 25988426 (Version 1)
Quarter: 2025Q4

REPORT INFORMATION
  Report Type: Spontaneous
  Country: US (occurrence: US)
  Receive Date: 20251103
  Receipt Date: 20251103
  Transmission Date: 20260118
  Serious: Yes (Other)
  Sender: COOPERSURGICAL
  Company Number: US-COOPERSURGICAL, INC.-2025CPS007585

PATIENT
  Age: 36 Year
  Sex: Female
  Weight: 63.492 kg

DRUGS (1)
  1. PARAGARD T 380A [Suspect]
     Active Substance: COPPER
     Indication: Contraception
     Dosage: UNK
     Route: 015
     Dates: start: 20100629, end: 20210913

REACTIONS (18)
  - Genitourinary tract neoplasm [Unknown]
  - Surgery [Recovered/Resolved]
  - Device breakage [Recovered/Resolved]
  - Foreign body in reproductive tract [Recovered/Resolved]
  - Complication of device removal [Recovered/Resolved]
  - Embedded device [Recovered/Resolved]
  - Emotional distress [Unknown]
  - Coital bleeding [Unknown]
  - Intentional device use issue [Recovered/Resolved]
  - Off label use [Unknown]
  - Pain [Unknown]
  - Abnormal uterine bleeding [Recovered/Resolved]
  - Pelvic pain [Not Recovered/Not Resolved]
  - Intermenstrual bleeding [Unknown]
  - Device expulsion [Recovered/Resolved]
  - Heavy menstrual bleeding [Unknown]
  - Muscle spasms [Unknown]
  - Bacterial vaginosis [Unknown]

NARRATIVE: CASE EVENT DATE: 20181108
